FAERS Safety Report 4588575-3 (Version None)
Quarter: 2005Q1

REPORT INFORMATION
  Report Type: 
  Country: None (occurrence: None)
  Receive Date: 20050222
  Receipt Date: 20050217
  Transmission Date: 20050727
  Serious: Yes (Congenital Anomaly)
  Sender: FDA-Public Use
  Company Number: PHBS2005IT02424

PATIENT
  Age: 0 Day
  Sex: 0

DRUGS (3)
  1. FORADIL [Suspect]
     Dosage: UNK, UNK
     Route: 064
     Dates: start: 20040402, end: 20050205
  2. EFFEXOR [Suspect]
     Dosage: UNK, UNK
     Route: 064
     Dates: start: 20040402, end: 20050205
  3. FLUSPIRAL [Suspect]
     Dosage: UNK, UNK
     Route: 064
     Dates: start: 20040402, end: 20050205

REACTIONS (2)
  - DRUG EXPOSURE DURING PREGNANCY [None]
  - MICROPHTHALMOS [None]
